FAERS Safety Report 8284946 (Version 3)
Quarter: 2014Q4

REPORT INFORMATION
  Report Type: Report from Study
  Country: HU (occurrence: HU)
  Receive Date: 20111212
  Receipt Date: 20141104
  Transmission Date: 20150529
  Serious: Yes (Hospitalization)
  Sender: FDA-Public Use
  Company Number: PHHO2011HU020627

PATIENT
  Age: 6 Year
  Sex: Female
  Weight: 25.5 kg

DRUGS (13)
  1. ACETYLCYSTEINE. [Concomitant]
     Active Substance: ACETYLCYSTEINE
     Indication: CYSTIC FIBROSIS
     Dosage: 200 MG, TID
     Route: 048
     Dates: start: 20050211
  2. CREON [Concomitant]
     Active Substance: PANCRELIPASE AMYLASE\PANCRELIPASE LIPASE\PANCRELIPASE PROTEASE
     Indication: CYSTIC FIBROSIS
     Dosage: 75 IU
     Route: 048
     Dates: start: 20041210
  3. MONTELUKAST [Concomitant]
     Active Substance: MONTELUKAST SODIUM
     Indication: CYSTIC FIBROSIS
  4. AMBROXOL [Concomitant]
     Active Substance: AMBROXOL
     Indication: CYSTIC FIBROSIS
     Dosage: 15 MG, BID
     Route: 048
     Dates: start: 20111207
  5. FLUTICASONE W/SALMETEROL [Concomitant]
     Active Substance: FLUTICASONE PROPIONATE\SALMETEROL XINAFOATE
     Indication: CYSTIC FIBROSIS
     Dosage: 2 X 1 INH
     Dates: start: 20111208
  6. BLINDED TOBRAMYCIN INHALATION POWDER [Suspect]
     Active Substance: UNSPECIFIED INGREDIENT
     Dosage: DOUBLE BLINDED
     Route: 055
     Dates: start: 20101109, end: 20101206
  7. PLACEBO [Suspect]
     Active Substance: UNSPECIFIED INGREDIENT
     Dosage: DOUBLE BLINDED
     Route: 055
     Dates: start: 20101109, end: 20101206
  8. BLINDED NO TREATMENT RECEIVED [Suspect]
     Active Substance: UNSPECIFIED INGREDIENT
     Indication: CYSTIC FIBROSIS
     Dosage: DOUBLE BLINDED
     Route: 055
     Dates: start: 20101004, end: 20101101
  9. BLINDED NO TREATMENT RECEIVED [Suspect]
     Active Substance: UNSPECIFIED INGREDIENT
     Dosage: DOUBLE BLINDED
     Route: 055
     Dates: start: 20101109, end: 20101206
  10. MONTELUKAST [Concomitant]
     Active Substance: MONTELUKAST SODIUM
     Indication: ASTHMA
     Dosage: 4 MG
     Route: 048
     Dates: start: 20090109
  11. PLACEBO [Suspect]
     Active Substance: UNSPECIFIED INGREDIENT
     Indication: CYSTIC FIBROSIS
     Dosage: DOUBLE BLINDED
     Route: 055
     Dates: start: 20101004, end: 20101101
  12. BLINDED TOBRAMYCIN INHALATION POWDER [Suspect]
     Active Substance: UNSPECIFIED INGREDIENT
     Indication: CYSTIC FIBROSIS
     Dosage: DOUBLE BLINDED
     Route: 055
     Dates: start: 20101004, end: 20101101
  13. PULMICORT TURBUHALER [Concomitant]
     Active Substance: BUDESONIDE
     Indication: ASTHMA
     Dosage: 200 G, BID
     Route: 055
     Dates: start: 20090109

REACTIONS (1)
  - Staphylococcal infection [Recovered/Resolved]

NARRATIVE: CASE EVENT DATE: 20111116
